FAERS Safety Report 10418366 (Version 9)
Quarter: 2022Q2

REPORT INFORMATION
  Report Type: Report from Study
  Country: BR (occurrence: BR)
  Receive Date: 20140829
  Receipt Date: 20220616
  Transmission Date: 20220720
  Serious: Yes (Life-Threatening, Hospitalization, Disabling, Other)
  Sender: FDA-Public Use
  Company Number: BR-SHIRE-BR201405269

PATIENT
  Age: 8 Year
  Sex: Male
  Weight: 31 kg

DRUGS (5)
  1. IDURSULFASE [Suspect]
     Active Substance: IDURSULFASE
     Indication: Mucopolysaccharidosis II
     Dosage: UNK, 1/WEEK
     Route: 042
     Dates: start: 20120208, end: 20140827
  2. RIVOTRIL [Concomitant]
     Active Substance: CLONAZEPAM
     Indication: Somnolence
     Dosage: UNK
     Route: 065
  3. QUETIAPINE [Concomitant]
     Active Substance: QUETIAPINE
     Indication: Behaviour disorder
     Dosage: UNK
     Route: 065
  4. QUETIAPINE [Concomitant]
     Active Substance: QUETIAPINE
     Indication: Psychotic behaviour
  5. RISPERIDONE [Concomitant]
     Active Substance: RISPERIDONE
     Indication: Behaviour disorder
     Dosage: UNK
     Route: 048
     Dates: start: 2012

REACTIONS (9)
  - Pneumonia [Recovered/Resolved with Sequelae]
  - Device related infection [Unknown]
  - Hyperthermia [Recovering/Resolving]
  - Generalised oedema [Recovered/Resolved]
  - Cyanosis [Recovered/Resolved]
  - Face oedema [Recovered/Resolved]
  - Gait inability [Unknown]
  - Vena cava thrombosis [Unknown]
  - Insomnia [Unknown]

NARRATIVE: CASE EVENT DATE: 20131023
